FAERS Safety Report 6870977-3 (Version None)
Quarter: 2010Q3

REPORT INFORMATION
  Report Type: 
  Country: None (occurrence: None)
  Receive Date: 20100723
  Receipt Date: 20100716
  Transmission Date: 20110219
  Serious: Yes (Disabling, Other)
  Sender: FDA-Public Use
  Company Number: GB-ASTRAZENECA-2010SE33227

PATIENT
  Age: 70 Year
  Sex: Male

DRUGS (13)
  1. LIDOCAINE [Suspect]
     Indication: PAIN
     Route: 061
     Dates: start: 20100705, end: 20100706
  2. BUPRENORPHINE [Concomitant]
     Indication: PAIN
     Route: 061
  3. CALCICHEW D3 [Concomitant]
     Indication: MINERAL SUPPLEMENTATION
  4. DEXAMETHASONE [Concomitant]
  5. ENOXAPARIN SODIUM [Concomitant]
     Indication: DEEP VEIN THROMBOSIS
     Route: 058
  6. FERROUS SULFATE TAB [Concomitant]
     Route: 048
  7. IBUPROFEN [Concomitant]
  8. METRONIDAZOLE [Concomitant]
  9. NULYTELY [Concomitant]
     Indication: CONSTIPATION
  10. OMEPRAZOLE [Concomitant]
     Indication: PROPHYLAXIS
     Route: 048
  11. PARACETAMOL [Concomitant]
  12. PREGABALIN [Concomitant]
  13. SENNA [Concomitant]
     Indication: CONSTIPATION

REACTIONS (2)
  - APPLICATION SITE ERYTHEMA [None]
  - APPLICATION SITE PAIN [None]
